FAERS Safety Report 23187783 (Version 2)
Quarter: 2024Q4

REPORT INFORMATION
  Report Type: Spontaneous
  Country: US (occurrence: US)
  Receive Date: 20231115
  Receipt Date: 20241115
  Transmission Date: 20250114
  Serious: Yes (Other)
  Sender: NOVO NORDISK
  Company Number: US-NOVOPROD-1047676

PATIENT
  Sex: Male

DRUGS (2)
  1. NOVOLOG [Suspect]
     Active Substance: INSULIN ASPART
     Indication: Type 2 diabetes mellitus
     Dosage: 15 UNITS 3 TIME SA TIME
     Route: 058
     Dates: start: 2022
  2. NOVOLOG [Suspect]
     Active Substance: INSULIN ASPART
     Dosage: 15 UNITS 3 TIME SA TIME
     Route: 058

REACTIONS (2)
  - Diabetes mellitus inadequate control [Not Recovered/Not Resolved]
  - Product quality issue [Not Recovered/Not Resolved]
